FAERS Safety Report 12623935 (Version 3)
Quarter: 2017Q2

REPORT INFORMATION
  Report Type: Report from Study
  Country: None (occurrence: BR)
  Receive Date: 20160804
  Receipt Date: 20170518
  Transmission Date: 20170830
  Serious: Yes (Hospitalization, Other)
  Sender: FDA-Public Use
  Company Number: BR-ABBVIE-16P-020-1693536-00

PATIENT
  Age: 57 Year
  Sex: Female
  Weight: 65 kg

DRUGS (8)
  1. OMEGA 3 [Concomitant]
     Active Substance: OMEGA-3 FATTY ACIDS
     Indication: NUTRITIONAL SUPPLEMENTATION
  2. OMEGA 3 [Concomitant]
     Active Substance: OMEGA-3 FATTY ACIDS
     Indication: MEMORY IMPAIRMENT
     Dosage: DAILY DOSE: 1 CAPSULE; AFTER LUNCH
  3. VITAMIN D [Concomitant]
     Active Substance: CHOLECALCIFEROL
     Indication: NUTRITIONAL SUPPLEMENTATION
  4. VITAMIN D [Concomitant]
     Active Substance: CHOLECALCIFEROL
     Indication: VITAMIN SUPPLEMENTATION
     Dosage: DAILY DOSE: 1 CAPSULE; AFTER LUNCH
  5. SYNTHROID [Suspect]
     Active Substance: LEVOTHYROXINE SODIUM
     Indication: THYROID FUNCTION TEST ABNORMAL
     Dosage: DAILY DOSE: 25 MCG; MORNING (FASTING)
     Route: 048
     Dates: start: 201603
  6. SYNTHROID [Suspect]
     Active Substance: LEVOTHYROXINE SODIUM
     Indication: THYROIDECTOMY
     Dosage: DAILY DOSE: 75 MCG; MORNING (FASTING)
     Route: 048
  7. SYNTHROID [Suspect]
     Active Substance: LEVOTHYROXINE SODIUM
     Dosage: DAILY DOSE: 100 MCG (1 TABLET OF 75 MCG + 1 TABLET OF 25 MCG)
     Route: 048
  8. SYNTHROID [Suspect]
     Active Substance: LEVOTHYROXINE SODIUM
     Dosage: MORNING (FASTING); 88MCG
     Route: 048

REACTIONS (4)
  - Thyroidectomy [Recovered/Resolved]
  - Alopecia [Not Recovered/Not Resolved]
  - Thyroid disorder [Recovered/Resolved]
  - Thyroid mass [Recovered/Resolved]

NARRATIVE: CASE EVENT DATE: 2016
